FAERS Safety Report 4724785-X (Version None)
Quarter: 2005Q3

REPORT INFORMATION
  Report Type: 
  Country: None (occurrence: None)
  Receive Date: 20050726
  Receipt Date: 20050718
  Transmission Date: 20060218
  Serious: Yes (Other)
  Sender: FDA-Public Use
  Company Number: DE-GLAXOSMITHKLINE-D0047117A

PATIENT

DRUGS (2)
  1. LAMICTAL [Suspect]
     Route: 048
  2. ERGENYL [Concomitant]
     Route: 065

REACTIONS (6)
  - ANXIETY [None]
  - CONVULSION [None]
  - DIARRHOEA [None]
  - DIZZINESS [None]
  - FATIGUE [None]
  - VOMITING [None]
